FAERS Safety Report 25069971 (Version 2)
Quarter: 2025Q1

REPORT INFORMATION
  Report Type: Report from Study
  Country: BE (occurrence: BE)
  Receive Date: 20250312
  Receipt Date: 20250319
  Transmission Date: 20250409
  Serious: Yes (Life-Threatening, Hospitalization)
  Sender: MYLAN
  Company Number: BE-MYLANLABS-2025M1019593

PATIENT
  Age: 7 Month
  Sex: Male

DRUGS (7)
  1. METHOTREXATE [Suspect]
     Active Substance: METHOTREXATE
     Indication: Infantile fibromatosis
     Dosage: 1 MILLIGRAM/KILOGRAM, QW
  2. METHOTREXATE [Suspect]
     Active Substance: METHOTREXATE
  3. DASATINIB [Suspect]
     Active Substance: DASATINIB
     Indication: Infantile fibromatosis
     Dosage: 60 MILLIGRAM/SQ. METER, QD
  4. DASATINIB [Suspect]
     Active Substance: DASATINIB
     Indication: Infantile fibromatosis
     Dosage: 60 MILLIGRAM/SQ. METER, QD
  5. DASATINIB [Suspect]
     Active Substance: DASATINIB
  6. VINBLASTINE [Concomitant]
     Active Substance: VINBLASTINE
     Indication: Infantile fibromatosis
     Dosage: 0.16 MILLIGRAM/KILOGRAM, QW
  7. VINBLASTINE [Concomitant]
     Active Substance: VINBLASTINE

REACTIONS (2)
  - Pulmonary hypertension [Recovered/Resolved]
  - Off label use [Unknown]
